FAERS Safety Report 18105328 (Version 1)
Quarter: 2020Q3

REPORT INFORMATION
  Report Type: Report from Study
  Country: None (occurrence: DE)
  Receive Date: 20200804
  Receipt Date: 20200804
  Transmission Date: 20201103
  Serious: Yes (Hospitalization)
  Sender: FDA-Public Use
  Company Number: DE-ABBVIE-20K-062-3504345-00

PATIENT
  Age: 67 Year
  Sex: Female

DRUGS (10)
  1. IMRALDI [Suspect]
     Active Substance: ADALIMUMAB
     Indication: PRODUCT USED FOR UNKNOWN INDICATION
     Route: 065
     Dates: start: 201901
  2. HUMIRA [Suspect]
     Active Substance: ADALIMUMAB
     Route: 058
     Dates: start: 201507, end: 201901
  3. METHOTREXATE. [Suspect]
     Active Substance: METHOTREXATE
     Dosage: BETWEEN 02OCT2018?02APR2019?BETWEEN 02APR2019?08OCT2019
     Route: 065
  4. HUMIRA [Suspect]
     Active Substance: ADALIMUMAB
     Indication: RHEUMATOID ARTHRITIS
     Route: 058
     Dates: start: 201105, end: 201504
  5. METHOTREXATE. [Suspect]
     Active Substance: METHOTREXATE
     Indication: PRODUCT USED FOR UNKNOWN INDICATION
     Dosage: BETWEEN 15MAY2014?12JAN2015?BETWEEN 18APR2017?17OCT2017
     Route: 065
  6. LEFLUNOMIDE. [Concomitant]
     Active Substance: LEFLUNOMIDE
  7. METHOTREXATE. [Suspect]
     Active Substance: METHOTREXATE
     Dosage: BETWEEN 02APR2019?08OCT2019
     Route: 065
  8. LEFLUNOMIDE. [Concomitant]
     Active Substance: LEFLUNOMIDE
     Indication: PRODUCT USED FOR UNKNOWN INDICATION
  9. METHOTREXATE. [Suspect]
     Active Substance: METHOTREXATE
     Dosage: BETWEEN 18APR2017?17OCT2017?BETWEEN 02OCT2018?02APR2019
     Route: 065
  10. CIMZIA [Concomitant]
     Active Substance: CERTOLIZUMAB PEGOL
     Indication: PRODUCT USED FOR UNKNOWN INDICATION
     Dates: start: 201504, end: 201505

REACTIONS (2)
  - Chronic obstructive pulmonary disease [Unknown]
  - Iron deficiency [Unknown]

NARRATIVE: CASE EVENT DATE: 20190404
